FAERS Safety Report 16124932 (Version 1)
Quarter: 2019Q1

REPORT INFORMATION
  Report Type: Spontaneous
  Country: HR (occurrence: HR)
  Receive Date: 20190327
  Receipt Date: 20190327
  Transmission Date: 20190418
  Serious: Yes (Hospitalization)
  Sender: FDA-Public Use
  Company Number: PHHY2019HR068050

PATIENT
  Age: 78 Year
  Sex: Male

DRUGS (4)
  1. TASIGNA [Suspect]
     Active Substance: NILOTINIB
     Indication: CHRONIC MYELOID LEUKAEMIA
     Dosage: 800 MG, QD (200 MG,2,0,2)
     Route: 048
     Dates: start: 20170718, end: 20190220
  2. TRIPLIXAM [Concomitant]
     Active Substance: AMLODIPINE BESYLATE\INDAPAMIDE\PERINDOPRIL ARGININE
     Indication: HYPERTENSION
     Dosage: 2 DF (10 MG PERINDOPRIL + 2,5 MG INDAPAMIDE + 10 MG AMLODIPINE), QD (10/2,5/10 MG; 1,0,1)
     Route: 048
     Dates: start: 2013, end: 20190212
  3. FURSEMID [Concomitant]
     Active Substance: FUROSEMIDE
     Indication: CARDIAC FAILURE
     Dosage: 80 MG, QD (40 MG, 2X1)
     Route: 048
     Dates: start: 20190131
  4. NORPREXANIL [Concomitant]
     Active Substance: UNSPECIFIED INGREDIENT
     Indication: HYPERTENSION
     Dosage: 2 DF (5 MG PERINDOPRIL + 5 MG AMLODIPINE), QD (5/5 MG, 2X1)
     Route: 048
     Dates: start: 20190213

REACTIONS (8)
  - Syncope [Recovered/Resolved]
  - Cardiac arrest [Recovering/Resolving]
  - Oedema peripheral [Recovering/Resolving]
  - Nephropathy toxic [Recovering/Resolving]
  - Dyspnoea [Recovering/Resolving]
  - Cardiomyopathy [Recovering/Resolving]
  - Pleural effusion [Recovering/Resolving]
  - Cardiac failure [Recovering/Resolving]

NARRATIVE: CASE EVENT DATE: 201811
